FAERS Safety Report 16948557 (Version 1)
Quarter: 2019Q4

REPORT INFORMATION
  Report Type: Spontaneous
  Country: US (occurrence: US)
  Receive Date: 20191023
  Receipt Date: 20191023
  Transmission Date: 20200122
  Serious: Yes (Other)
  Sender: FDA-Public Use
  Company Number: US-NAPPMUNDI-USA-2019-0147540

PATIENT
  Age: 45 Year
  Sex: Male
  Weight: 81.63 kg

DRUGS (3)
  1. OXYCODONE HYDROCHLORIDE (SIMILAR TO NDA 22-272) [Suspect]
     Active Substance: OXYCODONE HYDROCHLORIDE
     Indication: PRODUCT USED FOR UNKNOWN INDICATION
     Dosage: UNK
     Route: 048
  2. AMBIEN [Suspect]
     Active Substance: ZOLPIDEM TARTRATE
     Indication: PRODUCT USED FOR UNKNOWN INDICATION
     Dosage: UNK
     Route: 065
     Dates: start: 20190505
  3. AMBIEN [Suspect]
     Active Substance: ZOLPIDEM TARTRATE
     Dosage: 2 DF, UNK
     Route: 065
     Dates: start: 20190506

REACTIONS (9)
  - Drug abuse [Unknown]
  - Nystagmus [Unknown]
  - Toxicity to various agents [Unknown]
  - Fine motor skill dysfunction [Unknown]
  - Hypertension [Unknown]
  - Miosis [Unknown]
  - Impaired driving ability [Unknown]
  - Glassy eyes [Unknown]
  - Balance disorder [Unknown]

NARRATIVE: CASE EVENT DATE: 20190506
